FAERS Safety Report 7370074-7 (Version None)
Quarter: 2011Q1

REPORT INFORMATION
  Report Type: 
  Country: None (occurrence: None)
  Receive Date: 20110323
  Receipt Date: 20110309
  Transmission Date: 20110831
  Serious: Yes (Other)
  Sender: FDA-Public Use
  Company Number: PHHY2011US02057

PATIENT
  Sex: Male

DRUGS (1)
  1. AFINITOR [Suspect]
     Indication: ASTROCYTOMA
     Dosage: 5 MG, DAILY
     Route: 048
     Dates: start: 20101229

REACTIONS (6)
  - MOUTH ULCERATION [None]
  - LYMPHANGIOLEIOMYOMATOSIS [None]
  - EMPHYSEMA [None]
  - MOOD ALTERED [None]
  - FLAT AFFECT [None]
  - ORAL HERPES [None]
